FAERS Safety Report 20161913 (Version 1)
Quarter: 2021Q4

REPORT INFORMATION
  Report Type: Spontaneous
  Country: US (occurrence: None)
  Receive Date: 20211208
  Receipt Date: 20211208
  Transmission Date: 20220303
  Serious: Yes (Hospitalization)
  Sender: FDA-Public Use
  Company Number: None

PATIENT
  Age: 65 Year
  Sex: Female
  Weight: 96.57 kg

DRUGS (1)
  1. ALIMTA [Suspect]
     Active Substance: PEMETREXED DISODIUM
     Dates: end: 20211109

REACTIONS (4)
  - Hypoxia [None]
  - Oxygen saturation decreased [None]
  - Urinary tract infection [None]
  - Pancytopenia [None]

NARRATIVE: CASE EVENT DATE: 20211115
